FAERS Safety Report 21105695 (Version 1)
Quarter: 2022Q3

REPORT INFORMATION
  Report Type: Spontaneous
  Country: US (occurrence: DE)
  Receive Date: 20220720
  Receipt Date: 20220720
  Transmission Date: 20221027
  Serious: Yes (Other)
  Sender: FDA-Public Use
  Company Number: US-Blueprint Medicines Corporation-267

PATIENT
  Sex: Female

DRUGS (1)
  1. AYVAKIT [Suspect]
     Active Substance: AVAPRITINIB
     Indication: Systemic mastocytosis
     Route: 048
     Dates: start: 20220505

REACTIONS (6)
  - Retinal tear [Unknown]
  - Vision blurred [Unknown]
  - Illness [Recovering/Resolving]
  - Gastrointestinal disorder [Unknown]
  - Tryptase increased [Unknown]
  - Diarrhoea [Unknown]
